FAERS Safety Report 4944327-3 (Version None)
Quarter: 2006Q1

REPORT INFORMATION
  Report Type: 
  Country: None (occurrence: None)
  Receive Date: 20060315
  Receipt Date: 20050406
  Transmission Date: 20060701
  Serious: Yes (Hospitalization)
  Sender: FDA-Public Use
  Company Number: US-MERCK-0504USA01020

PATIENT
  Age: 57 Year
  Sex: Male
  Weight: 83 kg

DRUGS (12)
  1. VIOXX [Suspect]
     Indication: ARTHRALGIA
     Route: 048
     Dates: start: 20040101, end: 20040701
  2. NIASPAN [Concomitant]
     Route: 065
  3. DIGOXIN [Concomitant]
     Route: 065
  4. NORVASC [Concomitant]
     Route: 065
  5. LIPITOR [Concomitant]
     Route: 065
  6. PLAVIX [Concomitant]
     Route: 065
  7. RESTORIL [Concomitant]
     Route: 065
  8. DIABETA [Concomitant]
     Route: 065
  9. TYLENOL (CAPLET) [Concomitant]
     Route: 065
  10. ASPIRIN [Concomitant]
     Route: 065
  11. TRICOR [Concomitant]
     Route: 065
  12. NEXIUM [Concomitant]
     Route: 065

REACTIONS (8)
  - ACUTE MYOCARDIAL INFARCTION [None]
  - ANGINA UNSTABLE [None]
  - BLOOD CHOLESTEROL INCREASED [None]
  - CHEST PAIN [None]
  - DIABETES MELLITUS [None]
  - ELECTROCARDIOGRAM ABNORMAL [None]
  - ISCHAEMIC CARDIOMYOPATHY [None]
  - VASCULAR GRAFT OCCLUSION [None]
